FAERS Safety Report 16781785 (Version 1)
Quarter: 2019Q3

REPORT INFORMATION
  Report Type: Spontaneous
  Country: US (occurrence: US)
  Receive Date: 20190906
  Receipt Date: 20190906
  Transmission Date: 20191005
  Serious: No
  Sender: FDA-Public Use
  Company Number: US-ASTRAZENECA-2019SF15352

PATIENT
  Sex: Male
  Weight: 94.3 kg

DRUGS (1)
  1. BRILINTA [Suspect]
     Active Substance: TICAGRELOR
     Indication: STENT PLACEMENT
     Route: 048
     Dates: start: 201807

REACTIONS (4)
  - Inappropriate schedule of product administration [Unknown]
  - Weight decreased [Unknown]
  - Fat tissue increased [Unknown]
  - Product use issue [Unknown]
